FAERS Safety Report 10868393 (Version 1)
Quarter: 2015Q1

REPORT INFORMATION
  Report Type: Spontaneous
  Country: SE (occurrence: SE)
  Receive Date: 20150225
  Receipt Date: 20150225
  Transmission Date: 20150721
  Serious: Yes (Other)
  Sender: FDA-Public Use
  Company Number: SE-ACTAVIS-2015-03029

PATIENT
  Age: 43 Year
  Sex: Male

DRUGS (4)
  1. STESOLID [Suspect]
     Active Substance: DIAZEPAM
     Dosage: 40 MG, DAILY
     Route: 065
  2. ATARAX [Concomitant]
     Active Substance: HYDROXYZINE\HYDROXYZINE HYDROCHLORIDE
     Indication: PRODUCT USED FOR UNKNOWN INDICATION
     Dosage: UNK, UNKNOWN
     Route: 065
  3. STESOLID [Suspect]
     Active Substance: DIAZEPAM
     Indication: UNEVALUABLE EVENT
     Dosage: 12 MG, DAILY
     Route: 065
  4. THERALEN [Concomitant]
     Active Substance: TRIMEPRAZINE
     Indication: PRODUCT USED FOR UNKNOWN INDICATION
     Dosage: UNK, UNKNOWN
     Route: 065

REACTIONS (3)
  - Fear [Unknown]
  - Anxiety [Unknown]
  - Drug withdrawal syndrome [Unknown]
